FAERS Safety Report 4945234-2 (Version None)
Quarter: 2006Q1

REPORT INFORMATION
  Report Type: 
  Country: None (occurrence: None)
  Receive Date: 20060315
  Receipt Date: 20060315
  Transmission Date: 20060701
  Serious: Yes (Other)
  Sender: FDA-Public Use
  Company Number: None

PATIENT
  Age: 26 Year
  Sex: Female
  Weight: 66.6788 kg

DRUGS (1)
  1. METROPROLOL 50MG [Suspect]
     Dosage: 1/4 TAB DLY PO
     Route: 048

REACTIONS (3)
  - DIZZINESS [None]
  - PALPITATIONS [None]
  - TREMOR [None]
